FAERS Safety Report 5135434-3 (Version None)
Quarter: 2006Q4

REPORT INFORMATION
  Report Type: 
  Country: None (occurrence: None)
  Receive Date: 20061026
  Receipt Date: 20061018
  Transmission Date: 20070319
  Serious: Yes (Hospitalization)
  Sender: FDA-Public Use
  Company Number: JP-JPN-A200604338

PATIENT
  Age: 82 Year
  Sex: Male

DRUGS (2)
  1. PAXIL [Suspect]
     Indication: DEPRESSION
     Dosage: 30MG PER DAY
     Route: 048
     Dates: start: 20040101, end: 20061015
  2. DOGMATYL [Concomitant]
     Route: 065

REACTIONS (7)
  - BLOOD CREATINE PHOSPHOKINASE INCREASED [None]
  - CONFUSIONAL STATE [None]
  - INSOMNIA [None]
  - LOGORRHOEA [None]
  - RHABDOMYOLYSIS [None]
  - SEROTONIN SYNDROME [None]
  - URINARY INCONTINENCE [None]
